FAERS Safety Report 6739322-8 (Version None)
Quarter: 2010Q2

REPORT INFORMATION
  Report Type: 
  Country: None (occurrence: None)
  Receive Date: 20100517
  Receipt Date: 20100222
  Transmission Date: 20101027
  Serious: Yes (Hospitalization)
  Sender: FDA-Public Use
  Company Number: ALL1-2010-00893

PATIENT
  Age: 59 Year
  Sex: Female

DRUGS (1)
  1. FOSRENOL [Suspect]
     Indication: HYPERPHOSPHATAEMIA
     Dosage: 1000 MG, 1X/DAY:QD, ORAL ; 1000 MG, UNKNOWN (TAKES EVERY ONCE IN A WHILE), ORAL
     Route: 048
     Dates: start: 20090101

REACTIONS (1)
  - ABDOMINAL PAIN UPPER [None]
